FAERS Safety Report 7794404-7 (Version None)
Quarter: 2011Q4

REPORT INFORMATION
  Report Type: 
  Country: None (occurrence: None)
  Receive Date: 20111004
  Receipt Date: 20111004
  Transmission Date: 20120403
  Serious: Yes (Life-Threatening)
  Sender: FDA-Public Use
  Company Number: None

PATIENT
  Age: 45 Year
  Sex: Female
  Weight: 58.967 kg

DRUGS (1)
  1. MIRENA [Suspect]
     Dosage: 1
     Dates: start: 20050123, end: 20110820

REACTIONS (2)
  - URTICARIA [None]
  - ANGIOEDEMA [None]
